FAERS Safety Report 15741638 (Version 1)
Quarter: 2018Q4

REPORT INFORMATION
  Report Type: Spontaneous
  Country: FR (occurrence: FR)
  Receive Date: 20181219
  Receipt Date: 20181219
  Transmission Date: 20190205
  Serious: Yes (Other)
  Sender: FDA-Public Use
  Company Number: FR-TEVA-2018-FR-987302

PATIENT
  Age: 80 Year
  Sex: Female
  Weight: 56 kg

DRUGS (5)
  1. CARBOPLATINE [Suspect]
     Active Substance: CARBOPLATIN
     Indication: NON-SMALL CELL LUNG CANCER
     Dosage: 250 MILLIGRAM DAILY;
     Route: 042
     Dates: start: 20181031, end: 20181102
  2. ONDANSETRON [Concomitant]
     Active Substance: ONDANSETRON
     Dosage: 8 MILLIGRAM DAILY;
     Route: 042
     Dates: start: 20181031, end: 20181102
  3. METHYLPREDNISOLONE. [Concomitant]
     Active Substance: METHYLPREDNISOLONE
     Dosage: 80 MILLIGRAM DAILY;
     Route: 042
     Dates: start: 20181031, end: 20181102
  4. ETOPOSIDE. [Suspect]
     Active Substance: ETOPOSIDE
     Indication: NON-SMALL CELL LUNG CANCER
     Dosage: 170 MILLIGRAM DAILY;
     Route: 042
     Dates: start: 20181031, end: 20181102
  5. APREPITANT. [Concomitant]
     Active Substance: APREPITANT
     Dosage: 80 MILLIGRAM DAILY;
     Route: 048
     Dates: start: 20181031, end: 20181102

REACTIONS (2)
  - Platelet count decreased [Not Recovered/Not Resolved]
  - Neutropenia [Not Recovered/Not Resolved]

NARRATIVE: CASE EVENT DATE: 20181109
